FAERS Safety Report 25229087 (Version 1)
Quarter: 2025Q2

REPORT INFORMATION
  Report Type: Spontaneous
  Country: MD (occurrence: UA)
  Receive Date: 20250423
  Receipt Date: 20250423
  Transmission Date: 20250717
  Serious: Yes (Life-Threatening)
  Sender: ROCHE
  Company Number: MD-ROCHE-10000261066

PATIENT
  Age: 59 Year
  Sex: Female
  Weight: 54 kg

DRUGS (11)
  1. ACTEMRA [Suspect]
     Active Substance: TOCILIZUMAB
     Indication: Rheumatoid arthritis
     Route: 042
     Dates: start: 20230914, end: 20230914
  2. KETOPROFEN [Concomitant]
     Active Substance: KETOPROFEN
  3. THIOCOLCHICOSIDE [Concomitant]
     Active Substance: THIOCOLCHICOSIDE
  4. B complex Plus [Concomitant]
  5. FAMOTIDINE [Concomitant]
     Active Substance: FAMOTIDINE
  6. LISINOPRIL [Concomitant]
     Active Substance: LISINOPRIL
  7. METHOTREXATE SODIUM [Concomitant]
     Active Substance: METHOTREXATE SODIUM
  8. FOLIC ACID [Concomitant]
     Active Substance: FOLIC ACID
  9. Elafra [Concomitant]
  10. PREDNISOLONE [Concomitant]
     Active Substance: PREDNISOLONE
  11. Alergostop [Concomitant]

REACTIONS (4)
  - Asthenia [Recovered/Resolved]
  - Palpitations [Recovered/Resolved]
  - Nausea [Recovered/Resolved]
  - Headache [Recovered/Resolved]

NARRATIVE: CASE EVENT DATE: 20230914
